FAERS Safety Report 16335737 (Version 1)
Quarter: 2019Q2

REPORT INFORMATION
  Report Type: Spontaneous
  Country: DE (occurrence: DE)
  Receive Date: 20190521
  Receipt Date: 20190521
  Transmission Date: 20190711
  Serious: Yes (Life-Threatening, Other)
  Sender: FDA-Public Use
  Company Number: DE-CELLTRION INC.-2019DE021203

PATIENT

DRUGS (6)
  1. VINCRISTINE [Suspect]
     Active Substance: VINCRISTINE
     Indication: DIFFUSE LARGE B-CELL LYMPHOMA
     Dosage: SIX CYCLES OF DOSE-ADJUSTED EPOCH-R IMMUNOCHEMOTHERAPY
  2. ETOPOSIDE. [Suspect]
     Active Substance: ETOPOSIDE
     Indication: DIFFUSE LARGE B-CELL LYMPHOMA
     Dosage: SIX CYCLES OF DOSE-ADJUSTED EPOCH-R IMMUNOCHEMOTHERAPY
  3. RITUXIMAB (UNKNOWN) [Suspect]
     Active Substance: RITUXIMAB
     Indication: DIFFUSE LARGE B-CELL LYMPHOMA
     Dosage: SIX CYCLES OF DOSE-ADJUSTED EPOCH-R IMMUNOCHEMOTHERAPY
  4. DOXORUBICIN [Suspect]
     Active Substance: DOXORUBICIN
     Indication: DIFFUSE LARGE B-CELL LYMPHOMA
     Dosage: SIX CYCLES OF DOSE-ADJUSTED EPOCH-R IMMUNOCHEMOTHERAPY
  5. PREDNISOLONE. [Suspect]
     Active Substance: PREDNISOLONE
     Indication: DIFFUSE LARGE B-CELL LYMPHOMA
     Dosage: SIX CYCLES OF DOSE-ADJUSTED EPOCH-R IMMUNOCHEMOTHERAPY
  6. CYCLOPHOSPHAMIDE. [Suspect]
     Active Substance: CYCLOPHOSPHAMIDE
     Indication: DIFFUSE LARGE B-CELL LYMPHOMA
     Dosage: SIX CYCLES OF DOSE-ADJUSTED EPOCH-R IMMUNOCHEMOTHERAPY

REACTIONS (2)
  - Myeloproliferative neoplasm [Unknown]
  - Acquired gene mutation [Unknown]
